FAERS Safety Report 12972153 (Version 1)
Quarter: 2016Q4

REPORT INFORMATION
  Report Type: Spontaneous
  Country: US (occurrence: US)
  Receive Date: 20161124
  Receipt Date: 20161124
  Transmission Date: 20170207
  Serious: Yes (Disabling, Other)
  Sender: FDA-Public Use
  Company Number: US-AUROBINDO-AUR-APL-2016-13110

PATIENT
  Age: 26 Year
  Sex: Male

DRUGS (1)
  1. CIPROFLOXACIN. [Suspect]
     Active Substance: CIPROFLOXACIN
     Indication: DIARRHOEA INFECTIOUS
     Dosage: 500 MG, 3 TIMES A DAY
     Route: 065

REACTIONS (5)
  - Mobility decreased [Recovered/Resolved]
  - Musculoskeletal stiffness [Recovered/Resolved]
  - Tendon injury [Recovered/Resolved]
  - Tendon pain [Recovered/Resolved]
  - Toxicity to various agents [Recovered/Resolved]
